FAERS Safety Report 9587081 (Version 3)
Quarter: 2013Q4

REPORT INFORMATION
  Report Type: Spontaneous
  Country: US (occurrence: US)
  Receive Date: 20131003
  Receipt Date: 20131030
  Transmission Date: 20140711
  Serious: Yes (Hospitalization, Other)
  Sender: FDA-Public Use
  Company Number: US-ABBVIE-13P-163-1118207-00

PATIENT
  Age: 64 Year
  Sex: Male
  Weight: 94.89 kg

DRUGS (15)
  1. LUPRON DEPOT [Suspect]
     Indication: PROSTATE CANCER
     Route: 050
     Dates: start: 20130201, end: 201306
  2. HYDROCHLOORTHIAZIDE [Concomitant]
     Indication: HYPERTENSION
     Route: 048
  3. TRAZODONE [Concomitant]
     Indication: INSOMNIA
     Dosage: AT BEDTIME FOR SLEEP
     Route: 048
  4. UNKNOWN MEDICATIONS [Concomitant]
     Indication: INSOMNIA
  5. ATENOLOL [Concomitant]
     Indication: HYPERTENSION
     Route: 048
  6. ATORVASTATIN [Concomitant]
     Indication: HYPERLIPIDAEMIA
     Dosage: AT BEDTIME
     Route: 048
  7. LISOPRIL [Concomitant]
     Indication: HYPERTENSION
     Route: 048
  8. EFFEXOR [Concomitant]
     Indication: DEPRESSION
     Route: 048
  9. GLIMEPIRIDE [Concomitant]
     Indication: DIABETES MELLITUS
     Route: 048
  10. LINAGLIPTIN [Concomitant]
     Indication: DIABETES MELLITUS
     Dosage: AT BEDTIME
     Route: 048
  11. SEROQUEL [Concomitant]
     Indication: MOOD ALTERED
  12. SEROQUEL [Concomitant]
     Indication: PSYCHOTIC DISORDER
  13. TEGRETOL [Concomitant]
     Indication: PRODUCT USED FOR UNKNOWN INDICATION
  14. ZYPREXA [Concomitant]
     Indication: PRODUCT USED FOR UNKNOWN INDICATION
     Dosage: AT BEDTIME
  15. VISTARIL [Concomitant]
     Indication: PRODUCT USED FOR UNKNOWN INDICATION
     Dosage: AS NEEDED

REACTIONS (17)
  - Mania [Recovered/Resolved]
  - Renal impairment [Recovered/Resolved]
  - Activities of daily living impaired [Recovering/Resolving]
  - Bradyphrenia [Recovering/Resolving]
  - Mobility decreased [Recovering/Resolving]
  - Abnormal behaviour [Recovering/Resolving]
  - Insomnia [Unknown]
  - Hypotension [Recovered/Resolved]
  - Incontinence [Recovering/Resolving]
  - Emotional disorder [Unknown]
  - Tearfulness [Unknown]
  - Impaired driving ability [Recovering/Resolving]
  - Impaired work ability [Recovering/Resolving]
  - Disturbance in social behaviour [Recovering/Resolving]
  - Decreased interest [Recovering/Resolving]
  - Insomnia [Unknown]
  - Substance-induced mood disorder [Unknown]
